FAERS Safety Report 15686411 (Version 1)
Quarter: 2018Q4

REPORT INFORMATION
  Report Type: Report from Study
  Country: BR (occurrence: BR)
  Receive Date: 20181204
  Receipt Date: 20181204
  Transmission Date: 20190205
  Serious: Yes (Other)
  Sender: FDA-Public Use
  Company Number: BR-JNJFOC-20181136584

PATIENT
  Age: 54 Year
  Sex: Female

DRUGS (4)
  1. NATRILIX LP [Concomitant]
     Route: 065
  2. EUTHYROX [Concomitant]
     Active Substance: LEVOTHYROXINE SODIUM
     Route: 065
  3. SIMPONI [Suspect]
     Active Substance: GOLIMUMAB
     Indication: RHEUMATOID ARTHRITIS
     Route: 058
     Dates: start: 20170223
  4. LEFLUNOMIDE. [Concomitant]
     Active Substance: LEFLUNOMIDE
     Route: 065

REACTIONS (5)
  - Blood cholesterol increased [Recovering/Resolving]
  - Tooth extraction [Unknown]
  - Tooth loss [Unknown]
  - Post procedural haemorrhage [Recovered/Resolved]
  - Teeth brittle [Unknown]

NARRATIVE: CASE EVENT DATE: 201706
